FAERS Safety Report 9435981 (Version 2)
Quarter: 2013Q4

REPORT INFORMATION
  Report Type: Spontaneous
  Country: AU (occurrence: AU)
  Receive Date: 20130801
  Receipt Date: 20131118
  Transmission Date: 20140711
  Serious: Yes (Hospitalization)
  Sender: FDA-Public Use
  Company Number: AU-MERCK-1307AUS012588

PATIENT
  Sex: Male

DRUGS (3)
  1. VICTRELIS 200 MG [Suspect]
     Dosage: DOSE UNSPECIFIED.
     Route: 048
  2. RIBAVIRIN [Suspect]
     Dosage: DOSE UNSPECIFIED
     Route: 048
  3. PEGINTERFERON ALFA-2B [Suspect]
     Dosage: UNK
     Route: 065

REACTIONS (1)
  - Staphylococcal sepsis [Unknown]
